FAERS Safety Report 14754672 (Version 1)
Quarter: 2018Q2

REPORT INFORMATION
  Report Type: Report from Study
  Country: None (occurrence: CO)
  Receive Date: 20180413
  Receipt Date: 20180413
  Transmission Date: 20180711
  Serious: Yes (Disabling, Other)
  Sender: FDA-Public Use
  Company Number: CO-ABBVIE-17K-036-1939786-00

PATIENT
  Age: 31 Year
  Sex: Female
  Weight: 65 kg

DRUGS (1)
  1. HUMIRA [Suspect]
     Active Substance: ADALIMUMAB
     Indication: PSORIASIS
     Route: 058
     Dates: start: 20160429, end: 20161117

REACTIONS (7)
  - Psoriasis [Unknown]
  - Hypertension [Recovered/Resolved]
  - High risk pregnancy [Recovered/Resolved]
  - Tachycardia [Recovered/Resolved]
  - Live birth [Unknown]
  - Exposure during pregnancy [Unknown]
  - Shortened cervix [Unknown]

NARRATIVE: CASE EVENT DATE: 20171028
